FAERS Safety Report 13726117 (Version 2)
Quarter: 2017Q3

REPORT INFORMATION
  Report Type: Spontaneous
  Country: US (occurrence: US)
  Receive Date: 20170706
  Receipt Date: 20170712
  Transmission Date: 20171127
  Serious: No
  Sender: FDA-Public Use
  Company Number: US-GILEAD-2017-0281590

PATIENT
  Age: 24 Year
  Sex: Female
  Weight: 62.59 kg

DRUGS (1)
  1. VIREAD [Suspect]
     Active Substance: TENOFOVIR DISOPROXIL FUMARATE
     Indication: PRODUCT USED FOR UNKNOWN INDICATION
     Route: 065

REACTIONS (1)
  - Rash [Recovered/Resolved]

NARRATIVE: CASE EVENT DATE: 20161022
